FAERS Safety Report 10011538 (Version 1)
Quarter: 2014Q1

REPORT INFORMATION
  Report Type: Spontaneous
  Country: JP (occurrence: JP)
  Receive Date: 20140314
  Receipt Date: 20140314
  Transmission Date: 20141002
  Serious: Yes (Other)
  Sender: FDA-Public Use
  Company Number: JP-ASTELLAS-2014JP002035

PATIENT
  Age: 46 Year
  Sex: Male

DRUGS (6)
  1. FUNGUARD [Suspect]
     Indication: ACANTHAMOEBA KERATITIS
     Route: 061
  2. CORTICOSTEROID NOS [Concomitant]
     Indication: IRIDOCYCLITIS
     Route: 061
  3. CORTICOSTEROID NOS [Concomitant]
     Indication: IRIDOCYCLITIS
     Route: 065
  4. ACYCLOVIR                          /00587301/ [Concomitant]
     Indication: IRIDOCYCLITIS
     Route: 061
  5. ITRACONAZOLE [Concomitant]
     Indication: ACANTHAMOEBA KERATITIS
     Route: 048
  6. CHLORHEXIDINE [Concomitant]
     Route: 065

REACTIONS (3)
  - Drug ineffective for unapproved indication [Unknown]
  - Intentional drug misuse [Unknown]
  - Acanthamoeba keratitis [Unknown]
